FAERS Safety Report 11720997 (Version 1)
Quarter: 2015Q4

REPORT INFORMATION
  Report Type: Spontaneous
  Country: US (occurrence: US)
  Receive Date: 20151110
  Receipt Date: 20151110
  Transmission Date: 20160304
  Serious: No
  Sender: FDA-Public Use
  Company Number: US-SA-2015SA161093

PATIENT
  Age: 50 Year
  Sex: Male
  Weight: 106.59 kg

DRUGS (4)
  1. PRALUENT [Suspect]
     Active Substance: ALIROCUMAB
     Indication: BLOOD CHOLESTEROL
     Route: 058
     Dates: start: 20150923
  2. PRALUENT [Suspect]
     Active Substance: ALIROCUMAB
     Indication: BLOOD CHOLESTEROL
     Route: 058
     Dates: start: 20150923
  3. PROVENTIL [Concomitant]
     Active Substance: ALBUTEROL
  4. ALIROCUMAB PREFILLED PEN [Concomitant]
     Route: 058
     Dates: start: 20151001, end: 20151004

REACTIONS (5)
  - Hypersensitivity [Unknown]
  - Rash generalised [Unknown]
  - Diarrhoea [Recovered/Resolved]
  - Urticaria [Unknown]
  - Rash pruritic [Recovered/Resolved]

NARRATIVE: CASE EVENT DATE: 20151002
